FAERS Safety Report 5533996-5 (Version None)
Quarter: 2007Q4

REPORT INFORMATION
  Report Type: 
  Country: None (occurrence: None)
  Receive Date: 20071130
  Receipt Date: 20071115
  Transmission Date: 20080405
  Serious: Yes (Other)
  Sender: FDA-Public Use
  Company Number: 020919

PATIENT
  Age: 49 Year
  Sex: Female
  Weight: 47.2 kg

DRUGS (8)
  1. WARFARIN SODIUM [Suspect]
     Indication: DEEP VEIN THROMBOSIS
     Dosage: 7.5MG, QD
  2. OXYCONTIN (OXYCONTINE HYDROCHLORIDE) [Concomitant]
  3. FENTANYL [Concomitant]
  4. PERCOCET [Concomitant]
  5. PROTONIX [Concomitant]
  6. FOLIC ACID [Concomitant]
  7. VITAMIN B COMPLEX (PYRIDOXINE HYDROCHLORIDE, RIBOFLAVIN, CALCIUM PANTO [Concomitant]
  8. VITAMIN B12 [Concomitant]

REACTIONS (3)
  - BREAST CANCER FEMALE [None]
  - HAEMATOMA [None]
  - POST PROCEDURAL COMPLICATION [None]
